FAERS Safety Report 5186244-2 (Version None)
Quarter: 2006Q4

REPORT INFORMATION
  Report Type: 
  Country: None (occurrence: None)
  Receive Date: 20061212
  Receipt Date: 20061201
  Transmission Date: 20070319
  Serious: Yes (Hospitalization)
  Sender: FDA-Public Use
  Company Number: 2006BI016084

PATIENT
  Age: 63 Year
  Sex: Female

DRUGS (5)
  1. AVONEX [Suspect]
     Indication: MULTIPLE SCLEROSIS
     Dosage: 30 UG; QW; IM
     Route: 030
     Dates: start: 20021026
  2. AVONEX [Suspect]
     Indication: MULTIPLE SCLEROSIS
     Dosage: 30 UG; QW; IM
     Route: 030
  3. DIOVAN [Concomitant]
  4. CALCIUM [Concomitant]
  5. ASPIRIN [Concomitant]

REACTIONS (5)
  - ASTHENIA [None]
  - LUMBAR SPINAL STENOSIS [None]
  - MULTIPLE SCLEROSIS [None]
  - RADICULOPATHY [None]
  - SPINAL COLUMN STENOSIS [None]
